FAERS Safety Report 7372728-5 (Version None)
Quarter: 2011Q1

REPORT INFORMATION
  Report Type: 
  Country: None (occurrence: None)
  Receive Date: 20110324
  Receipt Date: 20110311
  Transmission Date: 20110831
  Serious: Yes (Other)
  Sender: FDA-Public Use
  Company Number: PHHY2011IT20447

PATIENT
  Age: 22 Year
  Sex: Male

DRUGS (8)
  1. MYCOPHENOLATE MOFETIL [Suspect]
     Indication: BEHCET'S SYNDROME
     Dosage: 2 G,/DAY
  2. CHLORAMBUCIL [Suspect]
     Indication: BEHCET'S SYNDROME
  3. AZATHIOPRINE [Suspect]
     Indication: BEHCET'S SYNDROME
     Dosage: 1.5 MG/KG/DAY
  4. INFLIXIMAB [Suspect]
     Indication: BEHCET'S SYNDROME
     Dosage: 5 MG/KG, UNK
  5. PREDNISONE [Suspect]
     Indication: BEHCET'S SYNDROME
     Dosage: MEAN DAILY DOSE OF }20 MG/DAY
  6. METHOTREXATE [Suspect]
     Indication: BEHCET'S SYNDROME
     Dosage: 20 MG/WEEK ALONE OR IN COMBINATION
  7. INTERFERON ALFA [Suspect]
     Indication: BEHCET'S SYNDROME
     Dosage: 3-4.5 MU THREE TIMES/WEEK
  8. CYCLOSPORINE [Suspect]
     Indication: BEHCET'S SYNDROME
     Dosage: 5 MG/KG/DAY

REACTIONS (13)
  - TRANSAMINASES INCREASED [None]
  - CATARACT [None]
  - GLAUCOMA [None]
  - DEPRESSION [None]
  - LEGIONELLA INFECTION [None]
  - RENAL IMPAIRMENT [None]
  - SUICIDE ATTEMPT [None]
  - PULMONARY TUBERCULOSIS [None]
  - OSTEOPOROSIS [None]
  - MULTIPLE-DRUG RESISTANCE [None]
  - NEPHROLITHIASIS [None]
  - LEUKOPENIA [None]
  - BEHCET'S SYNDROME [None]
